FAERS Safety Report 24097668 (Version 1)
Quarter: 2024Q3

REPORT INFORMATION
  Report Type: Spontaneous
  Country: US (occurrence: None)
  Receive Date: 20240716
  Receipt Date: 20240716
  Transmission Date: 20241017
  Serious: Yes (Hospitalization)
  Sender: Public
  Company Number: None

PATIENT
  Sex: Female

DRUGS (2)
  1. OPSUMIT [Suspect]
     Active Substance: MACITENTAN
     Indication: Pulmonary arterial hypertension
     Dosage: FREQUENCY : DAILY;?
     Route: 048
     Dates: start: 202401
  2. TYVASO DPI TITRAT KIT POW [Concomitant]

REACTIONS (9)
  - Coma [None]
  - Seizure [None]
  - Blood glucose increased [None]
  - Cardiac failure congestive [None]
  - Fatigue [None]
  - Dizziness [None]
  - Weight abnormal [None]
  - Oxygen consumption increased [None]
  - Dyspnoea exertional [None]
